FAERS Safety Report 9436295 (Version 5)
Quarter: 2013Q4

REPORT INFORMATION
  Report Type: Spontaneous
  Country: US (occurrence: US)
  Receive Date: 20130802
  Receipt Date: 20131230
  Transmission Date: 20140711
  Serious: Yes (Hospitalization, Other)
  Sender: FDA-Public Use
  Company Number: US-BIOGENIDEC-2013BI068558

PATIENT
  Age: 42 Year
  Sex: Female

DRUGS (3)
  1. TYSABRI [Suspect]
     Indication: MULTIPLE SCLEROSIS
     Route: 042
     Dates: start: 20080520
  2. TYSABRI [Suspect]
     Indication: MULTIPLE SCLEROSIS
     Route: 042
     Dates: start: 20070313, end: 20071123
  3. TYSABRI [Suspect]
     Indication: MULTIPLE SCLEROSIS

REACTIONS (5)
  - Bacteraemia [Recovered/Resolved]
  - Impaired gastric emptying [Recovered/Resolved]
  - Catheter site infection [Recovered/Resolved]
  - Sepsis [Not Recovered/Not Resolved]
  - Adrenal disorder [Recovered/Resolved]
